FAERS Safety Report 5842918-9 (Version None)
Quarter: 2008Q3

REPORT INFORMATION
  Report Type: 
  Country: None (occurrence: None)
  Receive Date: 20080813
  Receipt Date: 20080811
  Transmission Date: 20090109
  Serious: Yes (Other)
  Sender: FDA-Public Use
  Company Number: CA-BRISTOL-MYERS SQUIBB COMPANY-14296115

PATIENT
  Age: 73 Year
  Sex: Female

DRUGS (2)
  1. TAXOL [Suspect]
     Indication: BREAST CANCER
     Route: 042
  2. ABRAXANE [Suspect]
     Indication: BREAST CANCER
     Dosage: ABRAXANE FOR INJ SUSPENSION(PACLITAXEL PROTEIN-BOUND PARTICLES) (ALBUMIN-BOUND)
     Route: 042

REACTIONS (2)
  - HYPERSENSITIVITY [None]
  - LEUKOCYTOCLASTIC VASCULITIS [None]
